FAERS Safety Report 5836548-2 (Version None)
Quarter: 2008Q3

REPORT INFORMATION
  Report Type: 
  Country: None (occurrence: None)
  Receive Date: 20080807
  Receipt Date: 20080805
  Transmission Date: 20090109
  Serious: Yes (Life-Threatening, Other)
  Sender: FDA-Public Use
  Company Number: DE-BAYER-200815620GPV

PATIENT
  Age: 87 Year
  Sex: Male
  Weight: 58 kg

DRUGS (5)
  1. AVALOX 400 [Suspect]
     Indication: BRONCHITIS
     Dosage: TOTAL DAILY DOSE: 400 MG  UNIT DOSE: 400 MG
     Route: 048
     Dates: start: 20080320, end: 20080320
  2. PENICILLIN [Concomitant]
     Indication: BRONCHITIS CHRONIC
     Route: 065
     Dates: start: 20080101, end: 20080101
  3. DIGOXIN [Concomitant]
     Indication: DRUG USE FOR UNKNOWN INDICATION
     Route: 065
  4. UNSPECIFIED EYE-DROPS [Concomitant]
     Indication: DRUG USE FOR UNKNOWN INDICATION
     Route: 065
  5. ASPIRIN [Concomitant]
     Indication: DRUG USE FOR UNKNOWN INDICATION
     Route: 065

REACTIONS (11)
  - AMNESIA [None]
  - ASTHENIA [None]
  - BLINDNESS TRANSIENT [None]
  - DEPRESSED MOOD [None]
  - DISTURBANCE IN ATTENTION [None]
  - INAPPROPRIATE AFFECT [None]
  - LOSS OF CONSCIOUSNESS [None]
  - RETROGRADE AMNESIA [None]
  - SOMNOLENCE [None]
  - UNRESPONSIVE TO STIMULI [None]
  - VISUAL IMPAIRMENT [None]
